FAERS Safety Report 17548547 (Version 1)
Quarter: 2020Q1

REPORT INFORMATION
  Report Type: Spontaneous
  Country: GB (occurrence: GB)
  Receive Date: 20200317
  Receipt Date: 20200317
  Transmission Date: 20200409
  Serious: Yes (Life-Threatening, Hospitalization, Disabling, Other)
  Sender: FDA-Public Use
  Company Number: GB-TEVA-2020-GB-1200570

PATIENT
  Age: 87 Year
  Sex: Female

DRUGS (10)
  1. OMEPRAZOLE. [Concomitant]
     Active Substance: OMEPRAZOLE
  2. DEXAMFETAMINE [Suspect]
     Active Substance: DEXTROAMPHETAMINE
     Indication: NARCOLEPSY
     Dosage: 10 MG
     Route: 048
     Dates: end: 20200110
  3. ATORVASTATIN [Concomitant]
     Active Substance: ATORVASTATIN
  4. CO-DYDRAMOL [Concomitant]
     Active Substance: ACETAMINOPHEN\DIHYDROCODEINE
  5. INCRUSE ELLIPTA [Concomitant]
     Active Substance: UMECLIDINIUM BROMIDE
  6. ACETYLSALICYLIC ACID [Concomitant]
     Active Substance: ASPIRIN
  7. BUMETANIDE. [Concomitant]
     Active Substance: BUMETANIDE
  8. QUININE SULFATE. [Concomitant]
     Active Substance: QUININE SULFATE
  9. LISINOPRIL. [Concomitant]
     Active Substance: LISINOPRIL
  10. ATENOLOL. [Concomitant]
     Active Substance: ATENOLOL

REACTIONS (1)
  - Haemorrhage intracranial [Recovering/Resolving]
